FAERS Safety Report 6388217-0 (Version None)
Quarter: 2009Q4

REPORT INFORMATION
  Report Type: 
  Country: None (occurrence: None)
  Receive Date: 20091001
  Receipt Date: 20091001
  Transmission Date: 20100525
  Serious: Yes (Life-Threatening)
  Sender: FDA-Public Use
  Company Number: None

PATIENT
  Sex: Male
  Weight: 64.5 kg

DRUGS (2)
  1. PEGASYS [Suspect]
     Indication: HEPATITIS C
     Dosage: 160 MCG QWK A/C
     Dates: start: 20071001, end: 20071101
  2. PEGASYS [Suspect]
     Indication: HEPATITIS C
     Dosage: 160 MCG QWK A/C
     Dates: start: 20080301, end: 20080501

REACTIONS (3)
  - HYPERHIDROSIS [None]
  - PNEUMONIA [None]
  - WEIGHT DECREASED [None]
